FAERS Safety Report 19066042 (Version 9)
Quarter: 2022Q2

REPORT INFORMATION
  Report Type: Report from Study
  Country: US (occurrence: US)
  Receive Date: 20210327
  Receipt Date: 20220510
  Transmission Date: 20220721
  Serious: Yes (Hospitalization)
  Sender: FDA-Public Use
  Company Number: NVSC2021US062826

PATIENT
  Sex: Female

DRUGS (4)
  1. ENTRESTO [Suspect]
     Active Substance: SACUBITRIL\VALSARTAN
     Indication: Cardiac failure congestive
     Dosage: 1 DF, BID(24/26,MG)
     Route: 048
     Dates: start: 20210312, end: 20220219
  2. CARVEDILOL [Suspect]
     Active Substance: CARVEDILOL
     Indication: Cardiac failure
     Dosage: UNK, BID
     Route: 048
     Dates: start: 20220308
  3. CARVEDILOL [Suspect]
     Active Substance: CARVEDILOL
     Dosage: 6.5 MG, BID
     Route: 065
  4. JARDIANCE [Concomitant]
     Active Substance: EMPAGLIFLOZIN
     Indication: Product used for unknown indication
     Dosage: UNK
     Route: 065

REACTIONS (20)
  - Dyspnoea [Unknown]
  - Fall [Unknown]
  - Orthostatic hypotension [Recovered/Resolved]
  - Vomiting [Recovered/Resolved]
  - Mobility decreased [Unknown]
  - Pain [Unknown]
  - Pain in extremity [Not Recovered/Not Resolved]
  - Muscle spasms [Unknown]
  - Back pain [Unknown]
  - Movement disorder [Unknown]
  - Vulvovaginal mycotic infection [Unknown]
  - Dysstasia [Not Recovered/Not Resolved]
  - Gait disturbance [Not Recovered/Not Resolved]
  - Alopecia [Unknown]
  - Exercise tolerance decreased [Unknown]
  - Angiopathy [Unknown]
  - Balance disorder [Unknown]
  - Hypotension [Unknown]
  - Hypertension [Recovering/Resolving]
  - Product dose omission issue [Recovered/Resolved]

NARRATIVE: CASE EVENT DATE: 20200101
